FAERS Safety Report 8130566-X (Version None)
Quarter: 2012Q1

REPORT INFORMATION
  Report Type: 
  Country: None (occurrence: None)
  Receive Date: 20120211
  Receipt Date: 20110622
  Transmission Date: 20120608
  Serious: Yes (Hospitalization, Other)
  Sender: FDA-Public Use
  Company Number: PHHY2011US115458

PATIENT
  Age: 49 Year
  Sex: Female
  Weight: 59 kg

DRUGS (13)
  1. MORPHINE SULFATE [Concomitant]
     Dosage: 30 MG, UNK
  2. ACETAMINOPHEN AND HYDROCODONE BITARTRATE [Concomitant]
  3. LORAZEPAM [Concomitant]
     Dosage: 1 MG, UNK
     Route: 048
  4. FENTANYL CITRATE [Concomitant]
     Indication: PAIN
     Dosage: 12.5 MCG, UNK
  5. NICOTINE [Interacting]
     Indication: SMOKING CESSATION THERAPY
     Dosage: 7 MG, UNK
     Route: 062
  6. DIHYDROERGOTAMINE MESYLATE [Interacting]
     Dosage: 1 MG
     Route: 042
  7. VERAPAMIL [Suspect]
     Indication: HYPERTENSION
     Dosage: 120 MG, UNK
     Route: 048
  8. GABAPENTIN [Concomitant]
  9. VERAPAMIL [Interacting]
     Dosage: 180 MG, UNK
     Route: 048
  10. DULOXETIME HYDROCHLORIDE [Concomitant]
  11. NATALIZUMAB [Concomitant]
  12. AMANTADINE HCL [Concomitant]
  13. HALOPERIDOL [Concomitant]
     Dosage: 0.5 MG, UNK

REACTIONS (11)
  - PRINZMETAL ANGINA [None]
  - CHEST PAIN [None]
  - VASOSPASM [None]
  - MITRAL VALVE INCOMPETENCE [None]
  - VOMITING [None]
  - DRUG INTERACTION [None]
  - SOMNOLENCE [None]
  - BLOOD PRESSURE DECREASED [None]
  - NAUSEA [None]
  - CARDIAC ENZYMES INCREASED [None]
  - HEART RATE DECREASED [None]
